FAERS Safety Report 7772744-5 (Version None)
Quarter: 2011Q3

REPORT INFORMATION
  Report Type: 
  Country: None (occurrence: None)
  Receive Date: 20110922
  Receipt Date: 20101015
  Transmission Date: 20111222
  Serious: Yes (Hospitalization)
  Sender: FDA-Public Use
  Company Number: US-ASTRAZENECA-2010SE48902

PATIENT
  Age: 41 Year
  Sex: Female
  Weight: 83.5 kg

DRUGS (3)
  1. SEROQUEL XR [Suspect]
     Indication: BIPOLAR DISORDER
     Route: 048
     Dates: start: 20100901, end: 20101001
  2. EFFEXOR [Concomitant]
     Dates: start: 20100901
  3. SEROQUEL XR [Suspect]
     Route: 048
     Dates: start: 20101003

REACTIONS (8)
  - HEADACHE [None]
  - SOMNOLENCE [None]
  - AGITATION [None]
  - HYPOKALAEMIA [None]
  - PANIC ATTACK [None]
  - DEPRESSION [None]
  - SELF-MEDICATION [None]
  - SUICIDAL IDEATION [None]
